FAERS Safety Report 4692032-3 (Version None)
Quarter: 2005Q2

REPORT INFORMATION
  Report Type: 
  Country: None (occurrence: None)
  Receive Date: 20050614
  Receipt Date: 20050603
  Transmission Date: 20051028
  Serious: Yes (Death, Other)
  Sender: FDA-Public Use
  Company Number: HQWYE285306JUN05

PATIENT
  Sex: Female

DRUGS (4)
  1. PREMPRO [Suspect]
  2. CYCRIN [Suspect]
  3. PREMARIN [Suspect]
     Dosage: ORAL
     Route: 048
     Dates: end: 19990101
  4. PROVERA [Suspect]

REACTIONS (1)
  - OVARIAN CANCER [None]
